FAERS Safety Report 20819524 (Version 4)
Quarter: 2022Q3

REPORT INFORMATION
  Report Type: Spontaneous
  Country: JP (occurrence: JP)
  Receive Date: 20220512
  Receipt Date: 20220810
  Transmission Date: 20221027
  Serious: Yes (Hospitalization, Other)
  Sender: FDA-Public Use
  Company Number: JP-ELI_LILLY_AND_COMPANY-JP202205004805

PATIENT
  Age: 84 Year
  Sex: Male
  Weight: 51 kg

DRUGS (4)
  1. DULOXETINE HYDROCHLORIDE [Suspect]
     Active Substance: DULOXETINE HYDROCHLORIDE
     Indication: Decreased appetite
     Dosage: 20 MG, DAILY
     Route: 048
     Dates: start: 20220419, end: 20220425
  2. DULOXETINE HYDROCHLORIDE [Suspect]
     Active Substance: DULOXETINE HYDROCHLORIDE
     Indication: Diabetic neuropathy
     Dosage: 40 MG, DAILY
     Route: 048
     Dates: start: 20220426, end: 20220506
  3. CALONAL [Suspect]
     Active Substance: ACETAMINOPHEN
     Indication: Product used for unknown indication
  4. TRAMADOL [Concomitant]
     Active Substance: TRAMADOL
     Indication: Pain
     Dosage: 75 MG, DAILY
     Route: 048

REACTIONS (5)
  - Dementia [Unknown]
  - Delirium [Unknown]
  - Hyponatraemia [Recovered/Resolved]
  - Localised infection [Unknown]
  - Altered state of consciousness [Recovered/Resolved]

NARRATIVE: CASE EVENT DATE: 20220503
